FAERS Safety Report 5642530-0 (Version None)
Quarter: 2008Q1

REPORT INFORMATION
  Report Type: 
  Country: None (occurrence: None)
  Receive Date: 20080227
  Receipt Date: 20080227
  Transmission Date: 20080703
  Serious: Yes (Hospitalization)
  Sender: FDA-Public Use
  Company Number: None

PATIENT
  Sex: Female

DRUGS (4)
  1. INSULIN PUMP [Suspect]
     Indication: DIABETES MELLITUS
     Dosage: PRIOR TO ADMISSION (ER VISIT)
  2. METFORMIN HCL [Concomitant]
  3. VYTORIN [Concomitant]
  4. ALTACE [Concomitant]

REACTIONS (4)
  - HYPOGLYCAEMIA [None]
  - MENTAL STATUS CHANGES [None]
  - TREATMENT NONCOMPLIANCE [None]
  - UNRESPONSIVE TO STIMULI [None]
